FAERS Safety Report 8292445-7 (Version None)
Quarter: 2012Q2

REPORT INFORMATION
  Report Type: 
  Country: None (occurrence: None)
  Receive Date: 20120417
  Receipt Date: 20120405
  Transmission Date: 20120825
  Serious: Yes (Other)
  Sender: FDA-Public Use
  Company Number: US-ROCHE-1050438

PATIENT
  Sex: Female
  Weight: 88.3 kg

DRUGS (6)
  1. HYDROCORTISONE [Concomitant]
     Indication: ADRENAL INSUFFICIENCY
     Dosage: 10 MG AT AM AND 10 MG AT P,
     Route: 048
  2. NUTROPIN AQ [Suspect]
     Indication: GROWTH HORMONE DEFICIENCY
     Route: 058
     Dates: start: 20111222, end: 20120213
  3. CLONAZEPAM [Concomitant]
     Indication: ANXIETY
     Route: 048
  4. PERCOCET [Concomitant]
     Indication: PAIN
     Route: 048
  5. VITAMIN D [Concomitant]
     Indication: VITAMIN D DEFICIENCY
     Route: 048
  6. TOPIRAMATE [Concomitant]
     Indication: MIGRAINE
     Route: 048

REACTIONS (7)
  - SLEEP DISORDER [None]
  - DYSPNOEA [None]
  - FATIGUE [None]
  - DYSARTHRIA [None]
  - SOMNOLENCE [None]
  - HEART RATE INCREASED [None]
  - MOVEMENT DISORDER [None]
